FAERS Safety Report 14202202 (Version 4)
Quarter: 2018Q1

REPORT INFORMATION
  Report Type: Report from Study
  Country: US (occurrence: US)
  Receive Date: 20171117
  Receipt Date: 20180205
  Transmission Date: 20180508
  Serious: Yes (Death)
  Sender: FDA-Public Use
  Company Number: US-PFIZER INC-2017497241

PATIENT

DRUGS (8)
  1. TACROLIMUS. [Suspect]
     Active Substance: TACROLIMUS
     Indication: PROPHYLAXIS AGAINST GRAFT VERSUS HOST DISEASE
     Dosage: UNK (TARGET DOSE OF 10 X 10^6CD34+ CELLS/KG WITH 2 X 10^5 CD3+ T CELLS/KG)
  2. AZATHIOPRINE. [Concomitant]
     Active Substance: AZATHIOPRINE
     Indication: SICKLE CELL DISEASE
     Dosage: UNK (DAY 59-DAY 11)
  3. FLUDARABINE [Concomitant]
     Active Substance: FLUDARABINE PHOSPHATE
     Indication: SICKLE CELL DISEASE
     Dosage: 150 MG/M2, UNK
  4. ANTITHYMOCYTE IMMUNOGLOBULIN (RABBIT) [Concomitant]
     Active Substance: LAPINE T-LYMPHOCYTE IMMUNE GLOBULIN
     Indication: SICKLE CELL DISEASE
     Dosage: 8 MG/KG, UNK
  5. HYDROXYUREA. [Concomitant]
     Active Substance: HYDROXYUREA
     Indication: SICKLE CELL DISEASE
     Dosage: UNK (DAY 59-DAY 11)
  6. BUSULFAN. [Concomitant]
     Active Substance: BUSULFAN
     Indication: SICKLE CELL DISEASE
     Dosage: 12.8 MG/KG, UNK
  7. CYCLOPHOSPHAMIDE. [Concomitant]
     Active Substance: CYCLOPHOSPHAMIDE
     Indication: SICKLE CELL DISEASE
     Dosage: 200 MG/KG, UNK
  8. THIOTEPA. [Concomitant]
     Active Substance: THIOTEPA
     Indication: SICKLE CELL DISEASE
     Dosage: 10 MG/KG, UNK

REACTIONS (1)
  - Acute graft versus host disease [Fatal]
